FAERS Safety Report 5068017-4 (Version None)
Quarter: 2006Q3

REPORT INFORMATION
  Report Type: 
  Country: None (occurrence: None)
  Receive Date: 20060731
  Receipt Date: 20060717
  Transmission Date: 20061208
  Serious: Yes (Hospitalization, Other)
  Sender: FDA-Public Use
  Company Number: 2006090803

PATIENT
  Age: 54 Year
  Sex: Male

DRUGS (2)
  1. CELEBREX [Suspect]
     Indication: ARTHRITIS
     Dosage: 400 MG (200 MG, 2 IN 1 D)
     Dates: start: 20000101, end: 20010101
  2. BEXTRA [Suspect]
     Indication: BACK PAIN
     Dosage: 20 MG (20 MG, 1 IN 1 D)
     Dates: start: 20040101

REACTIONS (10)
  - CEREBROVASCULAR ACCIDENT [None]
  - DEPRESSION [None]
  - MUSCLE ATROPHY [None]
  - MUSCLE SPASMS [None]
  - MYOCARDIAL INFARCTION [None]
  - PAIN [None]
  - POLYP [None]
  - RENAL CYST [None]
  - RENAL DISORDER [None]
  - UNEVALUABLE EVENT [None]
